FAERS Safety Report 13188385 (Version 2)
Quarter: 2017Q1

REPORT INFORMATION
  Report Type: Spontaneous
  Country: JP (occurrence: JP)
  Receive Date: 20170206
  Receipt Date: 20170313
  Transmission Date: 20170428
  Serious: Yes (Death, Other)
  Sender: FDA-Public Use
  Company Number: JP-009507513-1701JPN002748J

PATIENT
  Age: 90 Year
  Sex: Female
  Weight: 39 kg

DRUGS (10)
  1. SUBVITAN [Concomitant]
     Indication: VITAMIN SUPPLEMENTATION
     Dosage: 5 ML, QD
     Route: 051
     Dates: start: 20160708, end: 20160711
  2. CALONAL [Concomitant]
     Active Substance: ACETAMINOPHEN
     Indication: SKIN DISORDER
     Dosage: 200 MG, QID
     Route: 048
     Dates: start: 20160831, end: 20160914
  3. SLOW-K [Concomitant]
     Active Substance: POTASSIUM CHLORIDE
     Indication: HYPOKALAEMIA
     Dosage: 600 MG, QD
     Route: 048
     Dates: end: 20160914
  4. BFLUID [Concomitant]
     Active Substance: AMINO ACIDS\DEXTROSE\ELECTROLYTES NOS\VITAMINS
     Indication: NUTRITIONAL CONDITION ABNORMAL
     Dosage: 500 ML, QD
     Route: 051
     Dates: start: 20160708, end: 20160711
  5. NEXIUM [Concomitant]
     Active Substance: ESOMEPRAZOLE MAGNESIUM
     Indication: GASTROOESOPHAGEAL REFLUX DISEASE
     Dosage: 20 MG, QD
     Route: 048
     Dates: end: 20160914
  6. BELSOMRA [Suspect]
     Active Substance: SUVOREXANT
     Indication: INSOMNIA
     Dosage: 15 MG, QD
     Route: 048
     Dates: start: 20160620, end: 20160914
  7. LENDORMIN [Concomitant]
     Active Substance: BROTIZOLAM
     Indication: INSOMNIA
     Dosage: 0.125 MG, QD
     Route: 048
     Dates: start: 20160625, end: 20160914
  8. CALONAL [Concomitant]
     Active Substance: ACETAMINOPHEN
     Indication: GASTRIC CANCER
     Dosage: 200 MG, TID
     Route: 048
     Dates: end: 20160830
  9. GASLON N_OD [Concomitant]
     Active Substance: IRSOGLADINE MALEATE
     Indication: GASTRITIS
     Dosage: 1 MG, QD
     Route: 048
     Dates: start: 20160708, end: 20160721
  10. SODIUM CHLORIDE INJECTION [Concomitant]
     Active Substance: SODIUM CHLORIDE
     Indication: HYPONATRAEMIA
     Dosage: 20 ML, QD
     Route: 051
     Dates: start: 20160708, end: 20160711

REACTIONS (5)
  - Dyspnoea [Fatal]
  - Diarrhoea [Recovering/Resolving]
  - Skin disorder [Not Recovered/Not Resolved]
  - Gastric cancer [Fatal]
  - Hyponatraemia [Recovering/Resolving]

NARRATIVE: CASE EVENT DATE: 20160705
